FAERS Safety Report 7735336-X (Version None)
Quarter: 2011Q3

REPORT INFORMATION
  Report Type: 
  Country: None (occurrence: None)
  Receive Date: 20110907
  Receipt Date: 20110825
  Transmission Date: 20111222
  Serious: No
  Sender: FDA-Public Use
  Company Number: US-B.I. PHARMACEUTICALS,INC./RIDGEFIELD-2011-BP-20849BP

PATIENT
  Sex: Female

DRUGS (7)
  1. METOPROLOL [Concomitant]
     Indication: HYPERTENSION
     Route: 048
  2. FERROUS SULFATE TAB [Concomitant]
     Indication: ROUTINE HEALTH MAINTENANCE
     Route: 048
  3. PRADAXA [Suspect]
     Indication: ATRIAL FIBRILLATION
     Dosage: 300 MG
     Route: 048
     Dates: start: 20110301
  4. LEVOTHYROXINE SODIUM [Concomitant]
     Indication: HYPOTHYROIDISM
     Route: 048
  5. LIPITOR [Concomitant]
     Indication: BLOOD CHOLESTEROL INCREASED
     Route: 048
  6. RAMIPRIL [Concomitant]
     Indication: HYPERTENSION
     Route: 048
  7. VITAMIN D [Concomitant]
     Indication: ROUTINE HEALTH MAINTENANCE
     Route: 048

REACTIONS (2)
  - DYSPEPSIA [None]
  - OROPHARYNGEAL PAIN [None]
